FAERS Safety Report 5207410-3 (Version None)
Quarter: 2007Q1

REPORT INFORMATION
  Report Type: 
  Country: None (occurrence: None)
  Receive Date: 20070112
  Receipt Date: 20070104
  Transmission Date: 20070707
  Serious: Yes (Hospitalization)
  Sender: FDA-Public Use
  Company Number: US-SHR-US-2006-028801

PATIENT
  Age: 52 Year
  Sex: Female

DRUGS (17)
  1. BETASERON [Suspect]
     Indication: SECONDARY PROGRESSIVE MULTIPLE SCLEROSIS
     Dosage: 8 MIU, EVERY 2D
     Route: 058
     Dates: start: 20060512
  2. ATENOLOL [Concomitant]
     Dosage: 50 MG, 1X/DAY
  3. LOTREL [Concomitant]
     Dosage: 5/20 MG/1 XDAY
  4. ACIPHEX [Concomitant]
     Dosage: 20 MBQ, 1X/DAY
  5. BACLOFEN [Concomitant]
     Dosage: 20 MG, 4X/DAY
  6. DIAZEPAM [Concomitant]
     Dosage: 5 MG, 4X/DAY
  7. DETROL [Concomitant]
     Dosage: 4 MG, 1X/DAY
  8. HYDROCODONE BITARTRATE + ACETAMINOPHEN [Concomitant]
     Dosage: UNK, EVERY 2D
  9. OXYCODONE HCL [Concomitant]
     Dosage: 45 MG, UNK
  10. PROVIGIL [Concomitant]
     Dosage: 100 MG, 1X/DAY
  11. TIZANIDINE HCL [Concomitant]
     Dosage: 4 MG, AS REQ'D
  12. WELLBUTRIN [Concomitant]
     Dosage: 150 MG, 1X/DAY
  13. VITAMIN B-12 [Concomitant]
     Dosage: 2000 A?G, UNK
  14. VITAMIN CAP [Concomitant]
     Dosage: UNK, 1X/DAY
  15. ASPIRIN [Concomitant]
     Dosage: 81 MG, 1X/DAY
  16. PREDNISONE TAB [Concomitant]
     Dosage: 20 MG, UNK
  17. CORTICOSTEROIDS [Concomitant]
     Dates: start: 20060401, end: 20061001

REACTIONS (2)
  - ABASIA [None]
  - HYPOAESTHESIA [None]
